FAERS Safety Report 13631662 (Version 1)
Quarter: 2017Q2

REPORT INFORMATION
  Report Type: Spontaneous
  Country: US (occurrence: US)
  Receive Date: 20170531
  Receipt Date: 20170531
  Transmission Date: 20170830
  Serious: No
  Sender: FDA-Public Use
  Company Number: US-ASTELLAS-1401687

PATIENT
  Age: 73 Year
  Sex: Male

DRUGS (15)
  1. ATORVASTATIN [Concomitant]
     Active Substance: ATORVASTATIN
     Route: 065
  2. PROTONIX [Concomitant]
     Active Substance: PANTOPRAZOLE SODIUM
  3. XARELTO [Concomitant]
     Active Substance: RIVAROXABAN
     Route: 065
  4. AMLODIPINE [Concomitant]
     Active Substance: AMLODIPINE BESYLATE
     Route: 065
  5. TARCEVA [Suspect]
     Active Substance: ERLOTINIB HYDROCHLORIDE
     Dosage: TAKE 1 TABLET BY MOUTH EVERY DAY
     Route: 048
     Dates: start: 201407
  6. TARCEVA [Suspect]
     Active Substance: ERLOTINIB HYDROCHLORIDE
     Dosage: USED AS DIRECTED BY PHYSICIAN
     Route: 048
     Dates: start: 20160613
  7. MINOCYCLINE HCL [Concomitant]
     Active Substance: MINOCYCLINE HYDROCHLORIDE
  8. TARCEVA [Suspect]
     Active Substance: ERLOTINIB HYDROCHLORIDE
     Indication: LUNG NEOPLASM MALIGNANT
     Route: 048
     Dates: start: 20140424
  9. LIPITOR [Concomitant]
     Active Substance: ATORVASTATIN CALCIUM
     Route: 065
  10. VITAMIN C [Concomitant]
     Active Substance: ASCORBIC ACID
  11. LINEZOLID. [Concomitant]
     Active Substance: LINEZOLID
     Route: 065
  12. PANTOPRAZOLE SODIUM. [Concomitant]
     Active Substance: PANTOPRAZOLE SODIUM
  13. TRIAMCINOLONE ACETONIDE. [Concomitant]
     Active Substance: TRIAMCINOLONE ACETONIDE
     Route: 065
  14. METHYLPRED [Concomitant]
     Active Substance: METHYLPREDNISOLONE
     Route: 065
  15. MAGNESIUM OXIDE. [Concomitant]
     Active Substance: MAGNESIUM OXIDE

REACTIONS (7)
  - Rash [Unknown]
  - Nausea [Unknown]
  - Rash generalised [Not Recovered/Not Resolved]
  - Lip dry [Unknown]
  - Drug ineffective [Unknown]
  - Dry skin [Unknown]
  - Rash [Not Recovered/Not Resolved]

NARRATIVE: CASE EVENT DATE: 201606
